FAERS Safety Report 7806610-3 (Version None)
Quarter: 2011Q4

REPORT INFORMATION
  Report Type: 
  Country: None (occurrence: None)
  Receive Date: 20111011
  Receipt Date: 20111007
  Transmission Date: 20120403
  Serious: Yes (Death)
  Sender: FDA-Public Use
  Company Number: GB-ABBOTT-11P-167-0862020-00

PATIENT
  Sex: Female

DRUGS (1)
  1. HUMIRA [Suspect]
     Indication: RHEUMATOID ARTHRITIS
     Route: 058
     Dates: start: 20050115

REACTIONS (5)
  - BACTERIAL SEPSIS [None]
  - CELLULITIS [None]
  - VENOUS INSUFFICIENCY [None]
  - OBESITY [None]
  - RHEUMATOID ARTHRITIS [None]
